FAERS Safety Report 23223088 (Version 1)
Quarter: 2023Q4

REPORT INFORMATION
  Report Type: Report from Study
  Country: GB (occurrence: GB)
  Receive Date: 20231123
  Receipt Date: 20231123
  Transmission Date: 20240109
  Serious: Yes (Other)
  Sender: FDA-Public Use
  Company Number: GB-002147023-NVSC2023GB245905

PATIENT
  Sex: Male

DRUGS (2)
  1. COSENTYX [Suspect]
     Active Substance: SECUKINUMAB
     Indication: Seronegative arthritis
     Dosage: 150 MG, QW (WEEKLY (0,1,2,3,4), FOLLOWED BY MONTHLY)
     Route: 058
  2. CLARITHROMYCIN [Concomitant]
     Active Substance: CLARITHROMYCIN
     Indication: Product used for unknown indication
     Dosage: 500 MG, BID
     Route: 065

REACTIONS (3)
  - Fracture infection [Unknown]
  - Upper limb fracture [Unknown]
  - Product use in unapproved indication [Unknown]
